FAERS Safety Report 16988897 (Version 1)
Quarter: 2019Q4

REPORT INFORMATION
  Report Type: Spontaneous
  Country: NL (occurrence: NL)
  Receive Date: 20191104
  Receipt Date: 20191104
  Transmission Date: 20200122
  Serious: Yes (Death, Hospitalization, Other)
  Sender: FDA-Public Use
  Company Number: NL-ASTELLAS-2019US018292

PATIENT
  Sex: Female

DRUGS (1)
  1. XTANDI [Suspect]
     Active Substance: ENZALUTAMIDE
     Indication: TRIPLE NEGATIVE BREAST CANCER
     Dosage: 160 MG (4 TABLETS)/ REGULAR DOSING, ONCE DAILY
     Route: 048
     Dates: start: 20190501

REACTIONS (6)
  - Drug ineffective for unapproved indication [Unknown]
  - Death [Fatal]
  - Fall [Unknown]
  - Product use issue [Unknown]
  - Femur fracture [Unknown]
  - Pathological fracture [Unknown]

NARRATIVE: CASE EVENT DATE: 20190501
